FAERS Safety Report 6614049-1 (Version None)
Quarter: 2010Q1

REPORT INFORMATION
  Report Type: 
  Country: None (occurrence: None)
  Receive Date: 20100304
  Receipt Date: 20100218
  Transmission Date: 20100710
  Serious: Yes (Hospitalization)
  Sender: FDA-Public Use
  Company Number: PHHY2009JP24656

PATIENT
  Sex: Female

DRUGS (2)
  1. AMN107 AMN+CAP [Suspect]
     Indication: MYELOID LEUKAEMIA
     Dosage: 800 MG DAILY
     Route: 048
     Dates: start: 20090612, end: 20090614
  2. AMN107 AMN+CAP [Suspect]
     Dosage: 400 MG DAILY
     Route: 048
     Dates: start: 20090616, end: 20090618

REACTIONS (3)
  - BLOOD GLUCOSE INCREASED [None]
  - ELECTROCARDIOGRAM QT PROLONGED [None]
  - LIPASE INCREASED [None]
